FAERS Safety Report 5272815-1 (Version None)
Quarter: 2007Q1

REPORT INFORMATION
  Report Type: 
  Country: None (occurrence: None)
  Receive Date: 20070322
  Receipt Date: 20070312
  Transmission Date: 20070707
  Serious: Yes (Other)
  Sender: FDA-Public Use
  Company Number: PHBS2007BR04647

PATIENT
  Age: 63 Year
  Sex: Male
  Weight: 60 kg

DRUGS (2)
  1. VOLTAREN [Suspect]
     Indication: RESPIRATORY DISORDER
     Dosage: 1 DF, ONCE/SINGLE
     Route: 042
     Dates: start: 20040101
  2. DECADRON [Concomitant]
     Route: 042

REACTIONS (4)
  - DRUG ADMINISTRATION ERROR [None]
  - HYPOAESTHESIA [None]
  - HYPOKINESIA [None]
  - INJECTION SITE INJURY [None]
